FAERS Safety Report 9257704 (Version 2)
Quarter: 2013Q4

REPORT INFORMATION
  Report Type: Spontaneous
  Country: US (occurrence: US)
  Receive Date: 20130426
  Receipt Date: 20131007
  Transmission Date: 20140711
  Serious: Yes (Other)
  Sender: FDA-Public Use
  Company Number: US-ASTELLAS-2013US004405

PATIENT
  Sex: Female
  Weight: 55 kg

DRUGS (1)
  1. PROGRAF [Suspect]
     Indication: RENAL TRANSPLANT
     Dosage: 2 MG, BID
     Route: 048
     Dates: start: 19950419

REACTIONS (4)
  - Renal pain [Unknown]
  - Colon neoplasm [Unknown]
  - Malaise [Unknown]
  - Pain [Unknown]
